FAERS Safety Report 20766798 (Version 1)
Quarter: 2022Q2

REPORT INFORMATION
  Report Type: Spontaneous
  Country: SG (occurrence: SG)
  Receive Date: 20220429
  Receipt Date: 20220429
  Transmission Date: 20220721
  Serious: Yes (Other)
  Sender: FDA-Public Use
  Company Number: SG-SERVIER-S22004140

PATIENT
  Age: 37 Year
  Sex: Female

DRUGS (1)
  1. IVABRADINE [Suspect]
     Active Substance: IVABRADINE
     Indication: Product used for unknown indication
     Dosage: UNK
     Route: 048

REACTIONS (5)
  - Palpitations [Unknown]
  - Tachycardia [Unknown]
  - Supraventricular tachycardia [Unknown]
  - Hyperhidrosis [Unknown]
  - Chest discomfort [Unknown]
